FAERS Safety Report 15571540 (Version 1)
Quarter: 2018Q4

REPORT INFORMATION
  Report Type: Spontaneous
  Country: GB (occurrence: GB)
  Receive Date: 20181031
  Receipt Date: 20181031
  Transmission Date: 20190205
  Serious: Yes (Other)
  Sender: FDA-Public Use
  Company Number: GB-MYLANLABS-2018M1080962

PATIENT
  Age: 59 Year
  Sex: Female

DRUGS (4)
  1. LEVETIRACETAM. [Suspect]
     Active Substance: LEVETIRACETAM
     Indication: FOCAL DYSCOGNITIVE SEIZURES
     Dosage: 750 MG, BID (750 MG, 2X/DAY (BID))
     Route: 065
  2. BRIVIACT [Suspect]
     Active Substance: BRIVARACETAM
     Indication: FOCAL DYSCOGNITIVE SEIZURES
     Dosage: 50 MG, BID (50 MG, 2X/DAY (BID))
     Route: 065
  3. LACOSAMIDE. [Suspect]
     Active Substance: LACOSAMIDE
     Indication: FOCAL DYSCOGNITIVE SEIZURES
     Dosage: 100 MG, BID (100 MG, 2X/DAY (BID))
  4. LACOSAMIDE. [Suspect]
     Active Substance: LACOSAMIDE
     Dosage: 50 MG, BID (50 MG, 2X/DAY (BID))

REACTIONS (5)
  - Drug ineffective [Unknown]
  - Balance disorder [Unknown]
  - Depression [Unknown]
  - Dizziness [Unknown]
  - Irritability [Unknown]
